FAERS Safety Report 8989248 (Version 3)
Quarter: 2013Q1

REPORT INFORMATION
  Report Type: Spontaneous
  Country: IN (occurrence: IN)
  Receive Date: 20121228
  Receipt Date: 20130108
  Transmission Date: 20140127
  Serious: Yes (Hospitalization)
  Sender: FDA-Public Use
  Company Number: IN-BAYER-2012-135139

PATIENT
  Age: 34 Year
  Sex: Male

DRUGS (1)
  1. ULTRAVIST [Suspect]
     Indication: UROGRAM
     Dosage: 100 ML, UNK
     Route: 042
     Dates: start: 20121224

REACTIONS (10)
  - Loss of consciousness [None]
  - Swelling face [Recovering/Resolving]
  - Eye disorder [None]
  - Rash generalised [None]
  - Headache [None]
  - Chills [None]
  - Skin discolouration [None]
  - Abdominal discomfort [None]
  - Hypoxia [None]
  - Blood pressure decreased [None]
